FAERS Safety Report 9263738 (Version 1)
Quarter: 2013Q1

REPORT INFORMATION
  Report Type: Spontaneous
  Country: US (occurrence: None)
  Receive Date: 20121212
  Receipt Date: 20121212
  Transmission Date: 20140127
  Serious: No
  Sender: FDA-Public Use
  Company Number: 1211USA001232

PATIENT
  Sex: Male

DRUGS (2)
  1. VICTRELIS (BOCEPREVIR) CAPSULE [Suspect]
     Indication: HEPATITIS C
     Dates: start: 20120316
  2. RIBAVIRIN (RIBAVIRIN) CAPSULE [Concomitant]

REACTIONS (2)
  - Rash [None]
  - Mental impairment [None]
